FAERS Safety Report 24122509 (Version 2)
Quarter: 2024Q3

REPORT INFORMATION
  Report Type: Other
  Country: CA (occurrence: CA)
  Receive Date: 20240723
  Receipt Date: 20240827
  Transmission Date: 20241017
  Serious: Yes (Other)
  Sender: TOLMAR
  Company Number: CA-TOLMAR, INC.-24CA051058

PATIENT
  Sex: Male

DRUGS (5)
  1. ELIGARD [Suspect]
     Active Substance: LEUPROLIDE ACETATE
     Indication: Product used for unknown indication
     Dosage: 22.5 MILLIGRAM
     Dates: start: 20190823
  2. ELIGARD [Suspect]
     Active Substance: LEUPROLIDE ACETATE
     Dosage: 22.5 MILLIGRAM
     Dates: start: 202002
  3. ELIGARD [Suspect]
     Active Substance: LEUPROLIDE ACETATE
     Indication: Product used for unknown indication
     Dosage: UNK
  4. UNSPECIFIED INGREDIENT [Suspect]
     Active Substance: UNSPECIFIED INGREDIENT
     Indication: Depression
     Dosage: UNK
  5. TYLENOL [Suspect]
     Active Substance: ACETAMINOPHEN
     Indication: Bone pain
     Dosage: UNK

REACTIONS (26)
  - Erectile dysfunction [Not Recovered/Not Resolved]
  - Seizure [Unknown]
  - Burning sensation [Unknown]
  - Seborrhoeic keratosis [Not Recovered/Not Resolved]
  - Respiration abnormal [Unknown]
  - Nervousness [Unknown]
  - General physical health deterioration [Unknown]
  - Chills [Unknown]
  - Heart rate increased [Unknown]
  - Erythema [Unknown]
  - Hypoaesthesia [Unknown]
  - Dyspnoea [Unknown]
  - Osteoporosis [Unknown]
  - Hypogonadism [Unknown]
  - Hot flush [Not Recovered/Not Resolved]
  - Headache [Unknown]
  - Pruritus [Not Recovered/Not Resolved]
  - Depression [Not Recovered/Not Resolved]
  - Bone pain [Not Recovered/Not Resolved]
  - Haemoglobin abnormal [Unknown]
  - Red blood cell count decreased [Unknown]
  - White blood cell count increased [Unknown]
  - Loss of libido [Not Recovered/Not Resolved]
  - Blood testosterone decreased [Unknown]
  - Asthenia [Not Recovered/Not Resolved]
  - Hyperhidrosis [Unknown]

NARRATIVE: CASE EVENT DATE: 20190101
